FAERS Safety Report 19421113 (Version 1)
Quarter: 2021Q2

REPORT INFORMATION
  Report Type: Spontaneous
  Country: JP (occurrence: JP)
  Receive Date: 20210615
  Receipt Date: 20210615
  Transmission Date: 20210717
  Serious: Yes (Other)
  Sender: FDA-Public Use
  Company Number: JP-PFIZER INC-2021663543

PATIENT
  Age: 7 Decade
  Sex: Female

DRUGS (4)
  1. CEPHADOL [Suspect]
     Active Substance: DIPHENIDOL HYDROCHLORIDE
     Indication: DIZZINESS
     Dosage: UNK UNK, UNKNOWN FREQ.
     Route: 048
  2. CALONAL [Concomitant]
     Active Substance: ACETAMINOPHEN
     Indication: FIXED ERUPTION
     Dosage: UNK UNK, UNKNOWN FREQ.
     Route: 048
  3. LOXONIN [Concomitant]
     Active Substance: LOXOPROFEN SODIUM
     Indication: ANALGESIC THERAPY
     Dosage: UNK UNK, AS NEEDED
     Route: 065
  4. CELECOXIB. [Suspect]
     Active Substance: CELECOXIB
     Indication: BACK PAIN
     Dosage: 100 MG, 1X/DAY
     Route: 048
     Dates: end: 202104

REACTIONS (6)
  - Hypothyroidism [Unknown]
  - Erythema [Recovered/Resolved]
  - Fixed eruption [Unknown]
  - Contusion [Unknown]
  - Diabetes mellitus [Unknown]
  - Herpes zoster [Unknown]

NARRATIVE: CASE EVENT DATE: 202103
